FAERS Safety Report 21055675 (Version 1)
Quarter: 2022Q3

REPORT INFORMATION
  Report Type: Spontaneous
  Country: LT (occurrence: LT)
  Receive Date: 20220708
  Receipt Date: 20220708
  Transmission Date: 20221027
  Serious: Yes (Life-Threatening, Hospitalization)
  Sender: FDA-Public Use
  Company Number: None

PATIENT
  Age: 22 Year
  Sex: Female

DRUGS (10)
  1. QUETIAPINE [Interacting]
     Active Substance: QUETIAPINE
     Indication: Mental disorder
     Dosage: UNIT DOSE , STRENGTH: 25MG, DURATION: 4 DAYS
     Route: 048
     Dates: start: 20220610, end: 20220614
  2. QUETIAPINE [Interacting]
     Active Substance: QUETIAPINE
     Dosage: UNIT DOSE, STRENGTH: 25MG, FREQUENCY TIME: 60 TOTAL
     Route: 048
     Dates: start: 20220614, end: 20220614
  3. DIAZEPAM [Suspect]
     Active Substance: DIAZEPAM
     Indication: Mental disorder
     Dosage: UNIT DOSE, STRENGTH: 5MG, FREQUENCY TIME: 15 TOTAL
     Route: 048
     Dates: start: 20220614, end: 20220614
  4. DIAZEPAM [Suspect]
     Active Substance: DIAZEPAM
     Dosage: UNIT DOSE, STRENGTH: 5MG, DURATION: 4 DAYS
     Route: 048
     Dates: start: 20220610, end: 20220614
  5. TRAZODONE HYDROCHLORIDE [Suspect]
     Active Substance: TRAZODONE HYDROCHLORIDE
     Indication: Mental disorder
     Dosage: STRENGTH: 150MG, UNIT DOSE: 150MG, FREQUENCY TIME: 20 TOTAL
     Route: 048
     Dates: start: 20220614, end: 20220614
  6. TRAZODONE HYDROCHLORIDE [Suspect]
     Active Substance: TRAZODONE HYDROCHLORIDE
     Dosage: STRENGTH: 150MG, UNIT DOSE: 150MG, DURATION: 4 DAYS
     Route: 048
     Dates: start: 20220610, end: 20220614
  7. ARIPIPRAZOLE [Suspect]
     Active Substance: ARIPIPRAZOLE
     Indication: Mental disorder
     Dosage: STRENGTH: 10MG, UNIT DOSE: 10MG, DURATION: 4 DAYS
     Route: 048
     Dates: start: 20220610, end: 20220614
  8. ARIPIPRAZOLE [Suspect]
     Active Substance: ARIPIPRAZOLE
     Dosage: STRENGTH: 10MG, UNIT DOSE: 10MG, FREQUENCY TIME: 30 TOTAL
     Route: 048
     Dates: start: 20220614, end: 20220614
  9. ESCITALOPRAM OXALATE [Suspect]
     Active Substance: ESCITALOPRAM OXALATE
     Indication: Mental disorder
     Dosage: UNIT DOSE, STRENGTH: 20MG, DURATION: 4 DAYS
     Route: 048
     Dates: start: 20220610, end: 20220614
  10. ESCITALOPRAM OXALATE [Suspect]
     Active Substance: ESCITALOPRAM OXALATE
     Dosage: UNIT DOSE, STRENGTH: 20MG, FREQUENCY TIME: 28 TOTAL
     Route: 048
     Dates: start: 20220614, end: 20220614

REACTIONS (8)
  - Somnolence [Recovering/Resolving]
  - Abnormal behaviour [Recovering/Resolving]
  - Intentional overdose [Recovering/Resolving]
  - Drug interaction [Recovering/Resolving]
  - Accidental overdose [Recovering/Resolving]
  - Mental disorder [Recovering/Resolving]
  - Suicide attempt [Recovering/Resolving]
  - Disorientation [Recovering/Resolving]

NARRATIVE: CASE EVENT DATE: 20220614
